FAERS Safety Report 4724399-1 (Version None)
Quarter: 2005Q3

REPORT INFORMATION
  Report Type: 
  Country: None (occurrence: None)
  Receive Date: 20050720
  Receipt Date: 20050720
  Transmission Date: 20060218
  Serious: Yes (Life-Threatening, Hospitalization, Disabling, Congenital Anomaly, Other)
  Sender: FDA-Public Use
  Company Number: None

PATIENT
  Age: 27 Year
  Sex: Female
  Weight: 56.6996 kg

DRUGS (6)
  1. TRIFLUOPERAZINE HCL [Suspect]
     Dosage: ORAL
     Route: 048
     Dates: start: 19920101
  2. ORTHO-NOVUM [Suspect]
  3. STELAZINE [Suspect]
     Dosage: ORAL 3-4 X /DAY
     Route: 048
     Dates: start: 19830601
  4. DESIPRAMINE HCL [Suspect]
     Indication: BIPOLAR I DISORDER
     Dosage: INTRAMUSCULAR
     Route: 030
     Dates: start: 19880501, end: 19890501
  5. DEPAKOTE [Suspect]
     Indication: SCHIZOAFFECTIVE DISORDER
     Dosage: 250 MG /2X DAY
     Dates: start: 19830601, end: 19980801
  6. ZYPREXA [Suspect]
     Indication: SCHIZOPHRENIA
     Dosage: 5 MG

REACTIONS (5)
  - BONE DENSITY DECREASED [None]
  - FAMILY STRESS [None]
  - FEELING ABNORMAL [None]
  - GINGIVAL DISORDER [None]
  - HYPOTHYROIDISM [None]
